FAERS Safety Report 14453982 (Version 2)
Quarter: 2018Q1

REPORT INFORMATION
  Report Type: Report from Study
  Country: US (occurrence: US)
  Receive Date: 20180129
  Receipt Date: 20180306
  Transmission Date: 20180509
  Serious: No
  Sender: FDA-Public Use
  Company Number: PHEH2018US003693

PATIENT
  Sex: Male

DRUGS (1)
  1. COSENTYX [Suspect]
     Active Substance: SECUKINUMAB
     Indication: PSORIASIS
     Dosage: 300 MG, QMO
     Route: 058
     Dates: start: 20171214

REACTIONS (4)
  - Skin discolouration [Recovering/Resolving]
  - Scar [Unknown]
  - Pruritus [Recovering/Resolving]
  - Skin plaque [Recovering/Resolving]
